FAERS Safety Report 14991008 (Version 1)
Quarter: 2018Q2

REPORT INFORMATION
  Report Type: Spontaneous
  Country: US (occurrence: US)
  Receive Date: 20180608
  Receipt Date: 20180608
  Transmission Date: 20180711
  Serious: Yes (Other)
  Sender: FDA-Public Use
  Company Number: US-ASTRAZENECA-2018SE73756

PATIENT
  Age: 65 Year
  Sex: Female
  Weight: 75.8 kg

DRUGS (8)
  1. PRILOSEC [Suspect]
     Active Substance: OMEPRAZOLE MAGNESIUM
     Indication: GASTROOESOPHAGEAL REFLUX DISEASE
     Dosage: 2 TO 3 TIMES A DAY
     Route: 048
     Dates: end: 2017
  2. SYNTHROID [Concomitant]
     Active Substance: LEVOTHYROXINE SODIUM
     Indication: THYROID DISORDER
     Route: 048
  3. CETIRIZINE [Concomitant]
     Active Substance: CETIRIZINE HYDROCHLORIDE
     Indication: HYPERSENSITIVITY
     Route: 048
     Dates: start: 2017
  4. ZOLOFT [Concomitant]
     Active Substance: SERTRALINE HYDROCHLORIDE
     Indication: DEPRESSION
     Route: 048
  5. PRILOSEC [Suspect]
     Active Substance: OMEPRAZOLE MAGNESIUM
     Indication: GASTROOESOPHAGEAL REFLUX DISEASE
     Dosage: 2 TO 3 TIMES A DAY
     Route: 048
     Dates: end: 2017
  6. CLONAZEPAM. [Concomitant]
     Active Substance: CLONAZEPAM
     Indication: NERVE INJURY
     Route: 048
     Dates: start: 2014
  7. AMLODIPINE BESILATE [Concomitant]
     Active Substance: AMLODIPINE BESYLATE
     Indication: BLOOD PRESSURE ABNORMAL
     Dosage: 10.0MG UNKNOWN
     Route: 048
  8. ASPIRIN. [Concomitant]
     Active Substance: ASPIRIN
     Indication: CARDIAC DISORDER
     Route: 048

REACTIONS (22)
  - Oral discomfort [Unknown]
  - Fall [Unknown]
  - Head injury [Unknown]
  - Liver disorder [Not Recovered/Not Resolved]
  - Red blood cell count decreased [Unknown]
  - Irritable bowel syndrome [Not Recovered/Not Resolved]
  - Tooth disorder [Unknown]
  - Oesophageal rupture [Not Recovered/Not Resolved]
  - Dysphagia [Not Recovered/Not Resolved]
  - Diverticulum oesophageal [Not Recovered/Not Resolved]
  - Oesophageal stenosis [Not Recovered/Not Resolved]
  - Gastrooesophageal reflux disease [Not Recovered/Not Resolved]
  - Asthenia [Unknown]
  - Depressed mood [Not Recovered/Not Resolved]
  - Speech disorder [Not Recovered/Not Resolved]
  - White blood cell count abnormal [Unknown]
  - Intentional product misuse [Recovered/Resolved]
  - Neoplasm malignant [Unknown]
  - Hepatic pain [Not Recovered/Not Resolved]
  - Memory impairment [Not Recovered/Not Resolved]
  - Weight decreased [Not Recovered/Not Resolved]
  - Cardiomegaly [Not Recovered/Not Resolved]

NARRATIVE: CASE EVENT DATE: 2017
